FAERS Safety Report 25198059 (Version 1)
Quarter: 2025Q2

REPORT INFORMATION
  Report Type: Spontaneous
  Country: US (occurrence: None)
  Receive Date: 20250414
  Receipt Date: 20250414
  Transmission Date: 20250717
  Serious: No
  Sender: FDA-CTU
  Company Number: None

PATIENT
  Age: 59 Year
  Sex: Female

DRUGS (1)
  1. PRIVIGEN [Suspect]
     Active Substance: HUMAN IMMUNOGLOBULIN G
     Indication: Chronic inflammatory demyelinating polyradiculoneuropathy
     Dosage: FREQUENCY : TWICE A DAY;?
     Route: 042
     Dates: start: 20240407, end: 20250409

REACTIONS (2)
  - Headache [None]
  - Aphthous ulcer [None]

NARRATIVE: CASE EVENT DATE: 20250409
